FAERS Safety Report 7805286-9 (Version None)
Quarter: 2011Q4

REPORT INFORMATION
  Report Type: 
  Country: None (occurrence: None)
  Receive Date: 20111010
  Receipt Date: 20111003
  Transmission Date: 20120403
  Serious: Yes (Hospitalization)
  Sender: FDA-Public Use
  Company Number: US-B.I. PHARMACEUTICALS,INC./RIDGEFIELD-2011-BP-21885BP

PATIENT
  Age: 84 Year

DRUGS (5)
  1. ISOSORBIDE DN [Concomitant]
     Dosage: 60 MG
  2. FUROSEMIDE [Concomitant]
     Dosage: 20 MG
  3. LISINOPRIL [Concomitant]
     Dosage: 10 MG
  4. PRADAXA [Suspect]
     Dosage: 300 MG
     Dates: start: 20110822
  5. PRADAXA [Suspect]
     Dosage: 150 MG

REACTIONS (1)
  - RECTAL HAEMORRHAGE [None]
